FAERS Safety Report 7859518-1 (Version None)
Quarter: 2011Q4

REPORT INFORMATION
  Report Type: 
  Country: None (occurrence: None)
  Receive Date: 20111027
  Receipt Date: 20111021
  Transmission Date: 20120403
  Serious: Yes (Other)
  Sender: FDA-Public Use
  Company Number: US-BAYER-2011-102767

PATIENT
  Age: 55 Year
  Sex: Male

DRUGS (2)
  1. REBIF [Concomitant]
  2. BETASERON [Suspect]
     Indication: PRODUCT USED FOR UNKNOWN INDICATION

REACTIONS (6)
  - CEREBRAL DISORDER [None]
  - PYREXIA [None]
  - IMMUNODEFICIENCY [None]
  - DEPRESSION [None]
  - INFLUENZA LIKE ILLNESS [None]
  - ADVERSE EVENT [None]
